FAERS Safety Report 19797980 (Version 1)
Quarter: 2021Q3

REPORT INFORMATION
  Report Type: Spontaneous
  Country: US (occurrence: US)
  Receive Date: 20210906
  Receipt Date: 20210906
  Transmission Date: 20211014
  Serious: Yes (Death)
  Sender: FDA-Public Use
  Company Number: None

PATIENT
  Age: 58 Year
  Sex: Female
  Weight: 104.33 kg

DRUGS (2)
  1. REGEN?COV [Suspect]
     Active Substance: CASIRIVIMAB\IMDEVIMAB
     Indication: COVID-19
     Route: 041
     Dates: start: 20210829, end: 20210829
  2. REGEN?COV [Suspect]
     Active Substance: CASIRIVIMAB\IMDEVIMAB
     Indication: PNEUMONIA
     Route: 041
     Dates: start: 20210829, end: 20210829

REACTIONS (5)
  - Respiratory failure [None]
  - Ventricular fibrillation [None]
  - Cardiac arrest [None]
  - Cardio-respiratory arrest [None]
  - Pneumothorax [None]

NARRATIVE: CASE EVENT DATE: 20210901
